FAERS Safety Report 10484759 (Version 3)
Quarter: 2015Q2

REPORT INFORMATION
  Report Type: Spontaneous
  Country: US (occurrence: US)
  Receive Date: 20140930
  Receipt Date: 20150525
  Transmission Date: 20150821
  Serious: Yes (Other)
  Sender: FDA-Public Use
  Company Number: US-JNJFOC-20140923419

PATIENT

DRUGS (24)
  1. USTEKINUMAB [Suspect]
     Active Substance: USTEKINUMAB
     Indication: PUSTULAR PSORIASIS
     Dosage: FOR PATIENTS WEIGHING LESS THAN 100 KILOGRAMS; SUBSEQUENT DOSAGE RANGED 45 MG TO 90 MG 8 TO 12 WEEKS
     Route: 058
  2. USTEKINUMAB [Suspect]
     Active Substance: USTEKINUMAB
     Indication: PSORIASIS
     Dosage: FOR PATIENTS WEIGHING LESS THAN 100 KILOGRAMS; SUBSEQUENT DOSAGE RANGED 45 MG TO 90 MG 8 TO 12 WEEKS
     Route: 058
  3. USTEKINUMAB [Suspect]
     Active Substance: USTEKINUMAB
     Indication: ERYTHRODERMIC PSORIASIS
     Dosage: FOR PATIENTS WEIGHING MORE THAN 100 KILOGRAMS; SUBSEQUENT DOSAGE RANGED 45 MG TO 90 MG 8 TO 12 WEEKS
     Route: 058
  4. USTEKINUMAB [Suspect]
     Active Substance: USTEKINUMAB
     Indication: ERYTHRODERMIC PSORIASIS
     Dosage: FOR PATIENTS WEIGHING LESS THAN 100 KILOGRAMS; SUBSEQUENT DOSAGE RANGED 45 MG TO 90 MG 8 TO 12 WEEKS
     Route: 058
  5. USTEKINUMAB [Suspect]
     Active Substance: USTEKINUMAB
     Indication: PSORIASIS
     Dosage: FOR PATIENTS WEIGHING MORE THAN 100 KILOGRAMS; SUBSEQUENT DOSAGE RANGED 45 MG TO 90 MG 8 TO 12 WEEKS
     Route: 058
  6. USTEKINUMAB [Suspect]
     Active Substance: USTEKINUMAB
     Indication: PSORIASIS
     Dosage: FOR PATIENTS WEIGHING MORE THAN 100 KILOGRAMS; SUBSEQUENT DOSAGE RANGED 45 MG TO 90 MG 8 TO 12 WEEKS
     Route: 058
  7. METHOTREXATE [Suspect]
     Active Substance: METHOTREXATE
     Indication: PRODUCT USED FOR UNKNOWN INDICATION
     Route: 065
  8. CYCLOSPORINE. [Concomitant]
     Active Substance: CYCLOSPORINE
     Route: 065
  9. USTEKINUMAB [Suspect]
     Active Substance: USTEKINUMAB
     Indication: PUSTULAR PSORIASIS
     Dosage: FOR PATIENTS WEIGHING MORE THAN 100 KILOGRAMS; SUBSEQUENT DOSAGE RANGED 45 MG TO 90 MG 8 TO 12 WEEKS
     Route: 058
  10. USTEKINUMAB [Suspect]
     Active Substance: USTEKINUMAB
     Indication: GUTTATE PSORIASIS
     Dosage: FOR PATIENTS WEIGHING MORE THAN 100 KILOGRAMS; SUBSEQUENT DOSAGE RANGED 45 MG TO 90 MG 8 TO 12 WEEKS
     Route: 058
  11. USTEKINUMAB [Suspect]
     Active Substance: USTEKINUMAB
     Indication: PSORIASIS
     Dosage: FOR PATIENTS WEIGHING MORE THAN 100 KILOGRAMS; SUBSEQUENT DOSAGE RANGED 45 MG TO 90 MG 8 TO 12 WEEKS
     Route: 058
  12. USTEKINUMAB [Suspect]
     Active Substance: USTEKINUMAB
     Indication: PSORIATIC ARTHROPATHY
     Dosage: FOR PATIENTS WEIGHING MORE THAN 100 KILOGRAMS; SUBSEQUENT DOSAGE RANGED 45 MG TO 90 MG 8 TO 12 WEEKS
     Route: 058
  13. USTEKINUMAB [Suspect]
     Active Substance: USTEKINUMAB
     Indication: PSORIATIC ARTHROPATHY
     Dosage: FOR PATIENTS WEIGHING LESS THAN 100 KILOGRAMS; SUBSEQUENT DOSAGE RANGED 45 MG TO 90 MG 8 TO 12 WEEKS
     Route: 058
  14. USTEKINUMAB [Suspect]
     Active Substance: USTEKINUMAB
     Indication: PSORIASIS
     Dosage: FOR PATIENTS WEIGHING LESS THAN 100 KILOGRAMS; SUBSEQUENT DOSAGE RANGED 45 MG TO 90 MG 8 TO 12 WEEKS
     Route: 058
  15. USTEKINUMAB [Suspect]
     Active Substance: USTEKINUMAB
     Indication: PSORIASIS
     Dosage: FOR PATIENTS WEIGHING LESS THAN 100 KILOGRAMS; SUBSEQUENT DOSAGE RANGED 45 MG TO 90 MG 8 TO 12 WEEKS
     Route: 058
  16. USTEKINUMAB [Suspect]
     Active Substance: USTEKINUMAB
     Indication: PSORIASIS
     Dosage: FOR PATIENTS WEIGHING LESS THAN 100 KILOGRAMS; SUBSEQUENT DOSAGE RANGED 45 MG TO 90 MG 8 TO 12 WEEKS
     Route: 058
  17. USTEKINUMAB [Suspect]
     Active Substance: USTEKINUMAB
     Indication: PUSTULAR PSORIASIS
     Dosage: FOR PATIENTS WEIGHING LESS THAN 100 KILOGRAMS; SUBSEQUENT DOSAGE RANGED 45 MG TO 90 MG 8 TO 12 WEEKS
     Route: 058
  18. USTEKINUMAB [Suspect]
     Active Substance: USTEKINUMAB
     Indication: SEBORRHOEIC DERMATITIS
     Dosage: FOR PATIENTS WEIGHING MORE THAN 100 KILOGRAMS; SUBSEQUENT DOSAGE RANGED 45 MG TO 90 MG 8 TO 12 WEEKS
     Route: 058
  19. ACITRETIN. [Concomitant]
     Active Substance: ACITRETIN
     Route: 065
  20. USTEKINUMAB [Suspect]
     Active Substance: USTEKINUMAB
     Indication: PUSTULAR PSORIASIS
     Dosage: FOR PATIENTS WEIGHING MORE THAN 100 KILOGRAMS; SUBSEQUENT DOSAGE RANGED 45 MG TO 90 MG 8 TO 12 WEEKS
     Route: 058
  21. USTEKINUMAB [Suspect]
     Active Substance: USTEKINUMAB
     Indication: GUTTATE PSORIASIS
     Dosage: FOR PATIENTS WEIGHING LESS THAN 100 KILOGRAMS; SUBSEQUENT DOSAGE RANGED 45 MG TO 90 MG 8 TO 12 WEEKS
     Route: 058
  22. USTEKINUMAB [Suspect]
     Active Substance: USTEKINUMAB
     Indication: SEBORRHOEIC DERMATITIS
     Dosage: FOR PATIENTS WEIGHING LESS THAN 100 KILOGRAMS; SUBSEQUENT DOSAGE RANGED 45 MG TO 90 MG 8 TO 12 WEEKS
     Route: 058
  23. USTEKINUMAB [Suspect]
     Active Substance: USTEKINUMAB
     Indication: PSORIASIS
     Dosage: FOR PATIENTS WEIGHING MORE THAN 100 KILOGRAMS; SUBSEQUENT DOSAGE RANGED 45 MG TO 90 MG 8 TO 12 WEEKS
     Route: 058
  24. HYDROXYUREA. [Concomitant]
     Active Substance: HYDROXYUREA
     Route: 065

REACTIONS (25)
  - Upper respiratory tract infection [Unknown]
  - Therapeutic response decreased [Unknown]
  - Tuberculin test positive [Unknown]
  - Gastrointestinal disorder [Unknown]
  - Rash [Unknown]
  - Acute myocardial infarction [Unknown]
  - Urinary tract infection [Unknown]
  - Skin infection [Unknown]
  - Coronary artery disease [Unknown]
  - Herpes zoster [Unknown]
  - Hepatic enzyme increased [Unknown]
  - Leukopenia [Unknown]
  - Condition aggravated [Unknown]
  - Genital herpes simplex [Unknown]
  - Leukocytosis [Unknown]
  - Antinuclear antibody positive [Unknown]
  - Anaemia [Unknown]
  - Product use issue [Unknown]
  - Thrombocytopenia [Unknown]
  - Pneumonia [Unknown]
  - Influenza like illness [Unknown]
  - Urticaria [Unknown]
  - Oral herpes [Unknown]
  - Eye infection [Unknown]
  - Renal impairment [Unknown]
